FAERS Safety Report 20866134 (Version 1)
Quarter: 2022Q2

REPORT INFORMATION
  Report Type: Spontaneous
  Country: US (occurrence: US)
  Receive Date: 20220524
  Receipt Date: 20220524
  Transmission Date: 20220720
  Serious: No
  Sender: FDA-Public Use
  Company Number: US-BRISTOL-MYERS SQUIBB COMPANY-2022-030795

PATIENT
  Age: 75 Year
  Sex: Male

DRUGS (1)
  1. REVLIMID [Suspect]
     Active Substance: LENALIDOMIDE
     Indication: Hodgkin^s disease
     Dosage: DOSE : UNAVAILABLE;     FREQ : 1 CAPSULE BY MOUTH DAILY  21 DAYS, 7 DAYS OFF

REACTIONS (2)
  - Inappropriate schedule of product administration [Unknown]
  - Intentional product use issue [Unknown]
